FAERS Safety Report 7524025-2 (Version None)
Quarter: 2011Q2

REPORT INFORMATION
  Report Type: 
  Country: None (occurrence: None)
  Receive Date: 20110604
  Receipt Date: 20110520
  Transmission Date: 20111010
  Serious: Yes (Hospitalization)
  Sender: FDA-Public Use
  Company Number: BE-WATSON-2011-06750

PATIENT
  Age: 18 Year
  Sex: Female

DRUGS (1)
  1. DILTIAZEM HYDROCHLORIDE [Suspect]
     Indication: INTENTIONAL OVERDOSE
     Dosage: 3600 MG

REACTIONS (8)
  - TACHYCARDIA [None]
  - BLOOD LACTIC ACID INCREASED [None]
  - HYPOTENSION [None]
  - INTENTIONAL OVERDOSE [None]
  - RESPIRATORY FAILURE [None]
  - BLOOD CREATININE INCREASED [None]
  - OLIGURIA [None]
  - HYPERGLYCAEMIA [None]
